FAERS Safety Report 9282648 (Version 2)
Quarter: 2013Q2

REPORT INFORMATION
  Report Type: Spontaneous
  Country: US (occurrence: None)
  Receive Date: 20110120
  Receipt Date: 20130419
  Transmission Date: 20140414
  Serious: No
  Sender: FDA-Public Use
  Company Number: 54973 RSAE010311EF001

PATIENT
  Age: 8 Month
  Sex: Male
  Weight: 9.98 kg

DRUGS (1)
  1. HYLAND^S TEETHING TABLETS [Suspect]
     Indication: TEETHING
     Dosage: 2 TAB  EVY  HR; 1  TABEVYHR

REACTIONS (5)
  - Stomatitis [None]
  - Gingival inflammation [None]
  - Anuria [None]
  - Diarrhoea [None]
  - Vomiting [None]
